FAERS Safety Report 14967986 (Version 1)
Quarter: 2018Q2

REPORT INFORMATION
  Report Type: Spontaneous
  Country: US (occurrence: US)
  Receive Date: 20180604
  Receipt Date: 20180604
  Transmission Date: 20180711
  Serious: No
  Sender: FDA-Public Use
  Company Number: US-BAYER-2018-105569

PATIENT
  Age: 49 Year
  Sex: Male

DRUGS (7)
  1. ACETYLSALICYLIC ACID({=100 MG) [Suspect]
     Active Substance: ASPIRIN
     Indication: FLUSHING
  2. ACETYLSALICYLIC ACID({=100 MG) [Suspect]
     Active Substance: ASPIRIN
     Indication: NEURALGIA
  3. IBUPROFEN. [Suspect]
     Active Substance: IBUPROFEN
  4. CELECOXIB. [Suspect]
     Active Substance: CELECOXIB
  5. AMITRIPTYLINE [Suspect]
     Active Substance: AMITRIPTYLINE
  6. LIDOCAINE. [Suspect]
     Active Substance: LIDOCAINE
  7. NAPROXEN SODIUM ({= 220 MG) [Suspect]
     Active Substance: NAPROXEN SODIUM
     Indication: NEURALGIA

REACTIONS (1)
  - Drug ineffective [None]
